FAERS Safety Report 12666606 (Version 1)
Quarter: 2016Q3

REPORT INFORMATION
  Report Type: Spontaneous
  Country: US (occurrence: US)
  Receive Date: 20160819
  Receipt Date: 20160819
  Transmission Date: 20161109
  Serious: Yes (Other)
  Sender: FDA-Public Use
  Company Number: US-HORIZON-BUP-0094-2016

PATIENT
  Age: 22 Year
  Sex: Male

DRUGS (7)
  1. PROPHREE [Concomitant]
     Indication: SUPPLEMENTATION THERAPY
  2. CITRULLINE [Concomitant]
     Active Substance: CITRULLINE
     Indication: SUPPLEMENTATION THERAPY
  3. TEGRETOL [Concomitant]
     Active Substance: CARBAMAZEPINE
  4. CYCLINEX [Concomitant]
     Indication: SUPPLEMENTATION THERAPY
  5. BACLOFEN. [Concomitant]
     Active Substance: BACLOFEN
  6. KEPPRA [Concomitant]
     Active Substance: LEVETIRACETAM
  7. BUPHENYL [Suspect]
     Active Substance: SODIUM PHENYLBUTYRATE
     Indication: ORNITHINE TRANSCARBAMOYLASE DEFICIENCY
     Dosage: 6 TABLETS TID

REACTIONS (1)
  - Hyperammonaemia [Unknown]
